FAERS Safety Report 9300061 (Version 1)
Quarter: 2013Q1

REPORT INFORMATION
  Report Type: Spontaneous
  Country: US (occurrence: None)
  Receive Date: 20130107
  Receipt Date: 20130107
  Transmission Date: 20140127
  Serious: No
  Sender: FDA-Public Use
  Company Number: PHEH2012US022007

PATIENT
  Age: 37 Year
  Sex: Female

DRUGS (12)
  1. GILENYA [Suspect]
     Route: 048
  2. TRAMADOL HCL (TRAMADOL HYDROCHLORIDE) TABLET [Concomitant]
  3. GABAPENTIN (GABAPENTIN) CAPSULE [Concomitant]
  4. AMBIEN (ZOLPIDEM TARTRATE) TABLET [Concomitant]
  5. BACLOFEN (BACLOFEN) [Concomitant]
  6. NORTRIPTYLIN (NORTRIPTYLINE HYDROCHLORIDE) CAPSULE [Concomitant]
  7. CITALOPRAM (CITALOPRAM) TABLET [Concomitant]
  8. ALLEGRA (FEXOFENADINE HYDROCHLORIDE) TABLET [Concomitant]
  9. VITAMIN D (ERGOCALCIFEROL) CAPSULE [Concomitant]
  10. FERROUS SULFATE (FERROUS SULFATE) [Concomitant]
  11. CRANBERRY (ASCORBIC ACID, VACCINIUM MACROCARPON) CAPSULE [Concomitant]
  12. VITAMIN B 12 (VITAMIN B NOS) TABLET [Concomitant]

REACTIONS (7)
  - Memory impairment [None]
  - Muscle spasms [None]
  - Dyskinesia [None]
  - Restlessness [None]
  - Muscle twitching [None]
  - Paraesthesia [None]
  - Condition aggravated [None]
